FAERS Safety Report 6253920-X (Version None)
Quarter: 2009Q3

REPORT INFORMATION
  Report Type: 
  Country: None (occurrence: None)
  Receive Date: 20090701
  Receipt Date: 20090701
  Transmission Date: 20100115
  Serious: No
  Sender: FDA-Public Use
  Company Number: None

PATIENT
  Age: 29 Year
  Sex: Female
  Weight: 72.1219 kg

DRUGS (2)
  1. MICROGESTIN 1.5/30 [Suspect]
     Indication: ENDOMETRIOSIS
     Dosage: ONCE TAB PO DAILY
     Route: 048
     Dates: start: 20090501
  2. MICROGESTIN 1.5/30 [Suspect]
     Indication: PELVIC PAIN
     Dosage: ONCE TAB PO DAILY
     Route: 048
     Dates: start: 20090501

REACTIONS (2)
  - METRORRHAGIA [None]
  - PRODUCT SUBSTITUTION ISSUE [None]
